FAERS Safety Report 22657129 (Version 1)
Quarter: 2023Q2

REPORT INFORMATION
  Report Type: Spontaneous
  Country: CN (occurrence: CN)
  Receive Date: 20230630
  Receipt Date: 20230630
  Transmission Date: 20230722
  Serious: Yes (Other)
  Sender: FDA-Public Use
  Company Number: CN-002147023-NVSC2023CN146584

PATIENT
  Age: 61 Year
  Sex: Female
  Weight: 49 kg

DRUGS (1)
  1. GLIVEC [Suspect]
     Active Substance: IMATINIB MESYLATE
     Indication: Malignant mesenchymoma
     Dosage: 400 MG, QD
     Route: 048
     Dates: start: 20230610, end: 20230622

REACTIONS (11)
  - Anaphylactoid reaction [Recovering/Resolving]
  - Eyelid oedema [Unknown]
  - Dry mouth [Unknown]
  - Dry throat [Unknown]
  - Lip exfoliation [Unknown]
  - Pain [Unknown]
  - Haemorrhage [Unknown]
  - Oedema [Unknown]
  - Eating disorder [Unknown]
  - Restlessness [Unknown]
  - Sleep disorder [Unknown]

NARRATIVE: CASE EVENT DATE: 20230622
